FAERS Safety Report 16528414 (Version 1)
Quarter: 2019Q3

REPORT INFORMATION
  Report Type: Spontaneous
  Country: US (occurrence: US)
  Receive Date: 20190704
  Receipt Date: 20190704
  Transmission Date: 20191004
  Serious: No
  Sender: FDA-Public Use
  Company Number: US-GW PHARMA-201904USGW0975

PATIENT

DRUGS (13)
  1. DIAZEPAM. [Concomitant]
     Active Substance: DIAZEPAM
     Indication: PRODUCT USED FOR UNKNOWN INDICATION
     Dosage: DOSE: 5MG/5ML, FORMULATION: SOLUTION
     Route: 065
     Dates: start: 20181024
  2. PULMICORT TURBUHALER [Concomitant]
     Active Substance: BUDESONIDE
     Dosage: DOSE: 0.5 MG/2, FORMULATION: SUSTAINED RELEASE
     Route: 065
     Dates: start: 20180730
  3. EPIDIOLEX [Suspect]
     Active Substance: CANNABIDIOL
     Dosage: 120 MILLIGRAM, BID
     Route: 048
     Dates: start: 201903, end: 201903
  4. LACTULOSE. [Concomitant]
     Active Substance: LACTULOSE
     Indication: PRODUCT USED FOR UNKNOWN INDICATION
     Dosage: DOSE: 10GM/15, FORMULATION: SOLUTION
     Route: 065
     Dates: start: 20181205
  5. NITROFURANTIN [Concomitant]
     Active Substance: NITROFURANTOIN
     Indication: PRODUCT USED FOR UNKNOWN INDICATION
     Dosage: 25 MG/5ML, SUSPENSION
     Route: 065
     Dates: start: 20181226
  6. EPIDIOLEX [Suspect]
     Active Substance: CANNABIDIOL
     Dosage: 160 MILLIGRAM, BID
     Route: 048
     Dates: start: 201904
  7. EPIDIOLEX [Suspect]
     Active Substance: CANNABIDIOL
     Dosage: 80 MILLIGRAM, BID
     Route: 048
     Dates: start: 201903, end: 201903
  8. IPRATROPIUM [Concomitant]
     Active Substance: IPRATROPIUM
     Indication: PRODUCT USED FOR UNKNOWN INDICATION
     Dosage: DOSE: 0.02% INH, FORMULATION: SOLUTION
     Dates: start: 20181203
  9. LEVETIRACETAM. [Concomitant]
     Active Substance: LEVETIRACETAM
     Indication: PRODUCT USED FOR UNKNOWN INDICATION
     Dosage: DOSE: 100MG/ML, FORMULATION: SOLUTION
     Route: 065
     Dates: start: 20190102
  10. EPIDIOLEX [Suspect]
     Active Substance: CANNABIDIOL
     Indication: LENNOX-GASTAUT SYNDROME
     Dosage: 40 MILLIGRAM, BID
     Route: 048
     Dates: start: 20190312, end: 201903
  11. RANITIDINE. [Concomitant]
     Active Substance: RANITIDINE
     Indication: PRODUCT USED FOR UNKNOWN INDICATION
     Dosage: DOSE: 75MG/5ML
     Route: 065
     Dates: start: 20180726
  12. BACLOFEN. [Concomitant]
     Active Substance: BACLOFEN
     Indication: PRODUCT USED FOR UNKNOWN INDICATION
     Dosage: 10 MG
     Route: 065
     Dates: start: 20181023
  13. PULMICORT TURBUHALER [Concomitant]
     Active Substance: BUDESONIDE
     Indication: PRODUCT USED FOR UNKNOWN INDICATION
     Dosage: DOSE: 0.5 MG/2, FORMULATION: SUSTAINED RELEASE
     Route: 065
     Dates: start: 20180430

REACTIONS (2)
  - Somnolence [Not Recovered/Not Resolved]
  - Hospitalisation [Unknown]

NARRATIVE: CASE EVENT DATE: 2019
